FAERS Safety Report 12432642 (Version 1)
Quarter: 2016Q2

REPORT INFORMATION
  Report Type: Spontaneous
  Country: US (occurrence: None)
  Receive Date: 20160602
  Receipt Date: 20160602
  Transmission Date: 20160815
  Serious: No
  Sender: FDA-Public Use
  Company Number: None

PATIENT
  Age: 77 Year
  Sex: Female
  Weight: 46.72 kg

DRUGS (6)
  1. AVELOX [Suspect]
     Active Substance: MOXIFLOXACIN HYDROCHLORIDE
     Indication: MIDDLE LOBE SYNDROME
     Dosage: 400 MG T PER DAY BY MOUTH
     Route: 048
     Dates: start: 20090312, end: 20090314
  2. MULTI VITAMIN [Concomitant]
     Active Substance: VITAMINS
  3. AVELOX [Suspect]
     Active Substance: MOXIFLOXACIN HYDROCHLORIDE
     Indication: BRONCHITIS
     Dosage: 400 MG T PER DAY BY MOUTH
     Route: 048
     Dates: start: 20090312, end: 20090314
  4. PREMARIN [Concomitant]
     Active Substance: ESTROGENS, CONJUGATED
  5. CALCIUM/MAGNESIUM [Concomitant]
  6. PROVERA [Concomitant]
     Active Substance: MEDROXYPROGESTERONE ACETATE

REACTIONS (3)
  - Paraesthesia [None]
  - Dyspnoea [None]
  - Feeling abnormal [None]

NARRATIVE: CASE EVENT DATE: 20090314
